FAERS Safety Report 19578010 (Version 6)
Quarter: 2021Q3

REPORT INFORMATION
  Report Type: Report from Study
  Country: PE (occurrence: PE)
  Receive Date: 20210719
  Receipt Date: 20210921
  Transmission Date: 20211014
  Serious: Yes (Hospitalization)
  Sender: FDA-Public Use
  Company Number: PE-ROCHE-2867442

PATIENT
  Age: 48 Year
  Sex: Female
  Weight: 68 kg

DRUGS (23)
  1. LOPERAMIDE [Concomitant]
     Active Substance: LOPERAMIDE
     Indication: DIARRHOEA
     Route: 048
     Dates: start: 20210605, end: 20210613
  2. MYCOPHENOLATE [Concomitant]
     Active Substance: MYCOPHENOLIC ACID
     Indication: VASCULITIS
     Route: 048
     Dates: start: 20210708, end: 20210802
  3. ATEZOLIZUMAB. [Suspect]
     Active Substance: ATEZOLIZUMAB
     Indication: NON-SMALL CELL LUNG CANCER METASTATIC
     Dosage: DATE OF MOST RECENT DOSE OF STUDY DRUG ATEZOLIZUMAB OF 1200 MG  PRIOR TO AE 17?JUN?2021 ON DAY 1 OF
     Route: 041
     Dates: start: 20210212
  4. OXYCODONE [Concomitant]
     Active Substance: OXYCODONE
     Indication: ARTHRALGIA
     Route: 048
     Dates: start: 20210401
  5. AMITRIPTYLINE [Concomitant]
     Active Substance: AMITRIPTYLINE
     Indication: PELVIC PAIN
     Route: 048
     Dates: start: 20210524
  6. VASOPRESSIN. [Concomitant]
     Active Substance: VASOPRESSIN
     Dosage: 10 OTHER
     Route: 058
     Dates: start: 20210716, end: 20210718
  7. VASOPRESSIN. [Concomitant]
     Active Substance: VASOPRESSIN
     Dosage: 10 OTHER
     Route: 058
     Dates: start: 20210718, end: 20210722
  8. PLACEBO [Suspect]
     Active Substance: UNSPECIFIED INGREDIENT
     Indication: NON-SMALL CELL LUNG CANCER METASTATIC
     Dosage: DATE OF MOST RECENT DOSE OF PLACEBO PRIOR TO AE ON 17/JUN/2021 ON DAY 1 OF EACH 21?DAY CYCLE
     Route: 042
     Dates: start: 20210212
  9. RANITIDINE. [Concomitant]
     Active Substance: RANITIDINE
     Route: 042
     Dates: start: 20210706, end: 20210720
  10. HEPARIN [Concomitant]
     Active Substance: HEPARIN SODIUM
     Indication: VENOUS THROMBOSIS LIMB
     Route: 058
     Dates: start: 20210223, end: 20210706
  11. SCOPOLAMINE [Concomitant]
     Active Substance: SCOPOLAMINE
     Indication: ABDOMINAL PAIN
     Route: 048
     Dates: start: 20210605, end: 20210619
  12. DEXAMETHASONE. [Concomitant]
     Active Substance: DEXAMETHASONE
     Indication: VASCULITIS
     Route: 048
     Dates: start: 20210703, end: 20210707
  13. FUROSEMIDE. [Concomitant]
     Active Substance: FUROSEMIDE
     Indication: OEDEMA PERIPHERAL
     Route: 048
     Dates: start: 20210629, end: 20210706
  14. PREDNISONE. [Concomitant]
     Active Substance: PREDNISONE
     Indication: VASCULITIS
     Route: 048
     Dates: start: 20210715, end: 20210802
  15. VASOPRESSIN. [Concomitant]
     Active Substance: VASOPRESSIN
     Indication: DIABETES INSIPIDUS
     Dosage: DOSE: 10 OTHER
     Route: 058
     Dates: start: 20210711, end: 20210715
  16. CALCIUM GLUCONATE. [Concomitant]
     Active Substance: CALCIUM GLUCONATE
     Indication: HYPOCALCAEMIA
     Dosage: DOSE: 1 AMPULE
     Route: 042
     Dates: start: 20210708, end: 20210715
  17. ENOXAPARIN [Concomitant]
     Active Substance: ENOXAPARIN
     Indication: VENOUS THROMBOSIS LIMB
     Route: 058
     Dates: start: 20210708
  18. ZOLEDRONIC ACID. [Concomitant]
     Active Substance: ZOLEDRONIC ACID
     Indication: METASTASES TO BONE
     Route: 042
     Dates: start: 20210617, end: 20210617
  19. HEPARIN [Concomitant]
     Active Substance: HEPARIN SODIUM
     Route: 058
     Dates: start: 20210707, end: 20210807
  20. CODEINE [Concomitant]
     Active Substance: CODEINE
     Indication: COUGH
     Route: 048
     Dates: start: 20210401
  21. METHYLPREDNISOLONE. [Concomitant]
     Active Substance: METHYLPREDNISOLONE
     Indication: VASCULITIS
     Route: 042
     Dates: start: 20210708, end: 20210714
  22. METOCLOPRAMIDE. [Concomitant]
     Active Substance: METOCLOPRAMIDE
     Indication: PROPHYLAXIS
     Route: 048
     Dates: start: 20210524, end: 20210617
  23. KALIUM [Concomitant]
     Active Substance: POTASSIUM CHLORIDE
     Indication: DIABETES INSIPIDUS
     Dosage: DOSE: 2000
     Route: 042
     Dates: start: 20210710

REACTIONS (1)
  - Cellulitis [Recovered/Resolved]

NARRATIVE: CASE EVENT DATE: 20210703
